FAERS Safety Report 13442680 (Version 1)
Quarter: 2017Q2

REPORT INFORMATION
  Report Type: Other
  Country: ES (occurrence: ES)
  Receive Date: 20170414
  Receipt Date: 20170414
  Transmission Date: 20170830
  Serious: Yes (Death, Hospitalization)
  Sender: FDA-Public Use
  Company Number: ES-ASTELLAS-2017US014254

PATIENT
  Age: 76 Year
  Sex: Male

DRUGS (7)
  1. MYCAMINE [Suspect]
     Active Substance: MICAFUNGIN SODIUM
     Indication: ABDOMINAL SEPSIS
     Route: 042
     Dates: start: 20150729, end: 20150813
  2. COTRIMOXAZOLE [Concomitant]
     Active Substance: SULFAMETHOXAZOLE\TRIMETHOPRIM
     Indication: ABDOMINAL SEPSIS
     Dosage: 2 U, EVERY 8 HOURS
     Route: 042
     Dates: start: 20150724
  3. FUROSEMIDE. [Concomitant]
     Active Substance: FUROSEMIDE
     Indication: FLUID OVERLOAD
     Route: 042
     Dates: start: 20150712
  4. ENOXAPARIN [Concomitant]
     Active Substance: ENOXAPARIN
     Indication: THROMBOSIS PROPHYLAXIS
     Route: 058
     Dates: start: 20150724
  5. PANTOPRAZOL [Concomitant]
     Active Substance: PANTOPRAZOLE SODIUM
     Indication: PROPHYLAXIS
     Dosage: 1 BLISTER, UNKNOWN FREQ.
     Route: 042
     Dates: start: 20150724
  6. TIGECYCLINE. [Suspect]
     Active Substance: TIGECYCLINE
     Indication: ABDOMINAL SEPSIS
     Route: 042
     Dates: start: 20150729
  7. MEROPENEM. [Concomitant]
     Active Substance: MEROPENEM
     Indication: ABDOMINAL SEPSIS
     Route: 042
     Dates: start: 20150729

REACTIONS (1)
  - Hepatitis cholestatic [Fatal]

NARRATIVE: CASE EVENT DATE: 20150812
